FAERS Safety Report 4602799-8 (Version None)
Quarter: 2005Q1

REPORT INFORMATION
  Report Type: 
  Country: None (occurrence: None)
  Receive Date: 20050309
  Receipt Date: 20041227
  Transmission Date: 20050727
  Serious: Yes (Disabling)
  Sender: FDA-Public Use
  Company Number: US-MERCK-0412USA02934

PATIENT
  Age: 66 Year
  Sex: Female

DRUGS (6)
  1. VYTORIN [Suspect]
     Indication: BLOOD CHOLESTEROL INCREASED
     Route: 048
     Dates: start: 20041111, end: 20041112
  2. VITAMINS (UNSPECIFIED) [Concomitant]
     Route: 065
  3. DIOVAN [Concomitant]
     Route: 065
  4. FIBERCON [Concomitant]
     Route: 065
  5. GASTROINTESTINAL PREPARATIONS (UNSPECIFIED) [Concomitant]
     Route: 065
  6. LEVOXYL [Concomitant]
     Route: 065

REACTIONS (4)
  - DYSURIA [None]
  - FEELING HOT [None]
  - MYALGIA [None]
  - POLLAKIURIA [None]
